FAERS Safety Report 7991809-6 (Version None)
Quarter: 2011Q4

REPORT INFORMATION
  Report Type: 
  Country: None (occurrence: None)
  Receive Date: 20111219
  Receipt Date: 20111212
  Transmission Date: 20120403
  Serious: Yes (Other)
  Sender: FDA-Public Use
  Company Number: PHEH2011US011546

PATIENT
  Sex: Female
  Weight: 95.238 kg

DRUGS (6)
  1. GLEEVEC [Suspect]
     Dosage: 400 MG, QD
  2. PREVACID [Concomitant]
     Dosage: 30 MG, UNK
  3. CALCIUM WITH VITAMIN D [Concomitant]
     Dosage: UNK UKN, UNK
  4. ALLOPURINOL [Concomitant]
     Dosage: 300 MG, UNK
  5. BYSTOLIC [Concomitant]
     Dosage: 5 MG, UNK
  6. XANAX [Concomitant]
     Dosage: 0.5 MG, UNK

REACTIONS (3)
  - ARTHRALGIA [None]
  - FOOT FRACTURE [None]
  - SERUM FERRITIN DECREASED [None]
